FAERS Safety Report 8431513-3 (Version None)
Quarter: 2012Q2

REPORT INFORMATION
  Report Type: 
  Country: None (occurrence: None)
  Receive Date: 20120613
  Receipt Date: 20120604
  Transmission Date: 20120825
  Serious: Yes (Hospitalization, Other)
  Sender: FDA-Public Use
  Company Number: JP-JNJFOC-20120603591

PATIENT
  Age: 15 Year
  Sex: Male
  Weight: 52 kg

DRUGS (18)
  1. ASACOL [Concomitant]
     Indication: COLITIS ULCERATIVE
     Route: 048
     Dates: start: 20111218, end: 20120203
  2. REMICADE [Suspect]
     Indication: COLITIS ULCERATIVE
     Route: 042
     Dates: start: 20110419
  3. REMICADE [Suspect]
     Route: 042
     Dates: start: 20110326
  4. REMICADE [Suspect]
     Route: 042
     Dates: start: 20120208
  5. FLAGYL [Concomitant]
     Indication: COLITIS ULCERATIVE
     Dosage: INITIATED BEFORE INFLIXIMAB
     Route: 048
  6. ACETAMINOPHEN [Concomitant]
     Indication: COLITIS ULCERATIVE
     Dosage: INITIATED BEFORE INFLIXIMAB
     Route: 048
  7. PENTASA [Suspect]
     Indication: COLITIS ULCERATIVE
     Route: 048
     Dates: end: 20111217
  8. RABEPRAZOLE SODIUM [Concomitant]
     Indication: PROPHYLAXIS
     Dosage: INITIATED BEFORE INFLIXIMAB
     Route: 048
  9. REMICADE [Suspect]
     Route: 042
     Dates: start: 20110610
  10. REMICADE [Suspect]
     Route: 042
     Dates: start: 20111126
  11. REMICADE [Suspect]
     Route: 042
     Dates: start: 20110314
  12. PENTASA [Suspect]
     Route: 048
     Dates: start: 20120204, end: 20120206
  13. IMURAN [Concomitant]
     Indication: COLITIS ULCERATIVE
     Dosage: INITIATED PRIOR TO INFLIXIMAB
     Route: 048
  14. REBAMIPIDE [Concomitant]
     Indication: PROPHYLAXIS
     Dosage: INITIATED PRIOR TO INFLIXIMAB
     Route: 048
  15. MIYA BM [Concomitant]
     Indication: COLITIS ULCERATIVE
     Dosage: INITIATED BEFORE INFLIXIMAB
     Route: 048
  16. TRANCOLON [Concomitant]
     Indication: COLITIS ULCERATIVE
     Dosage: INITIATED BEFORE INFLIXIMAB
     Route: 048
  17. REMICADE [Suspect]
     Route: 042
     Dates: start: 20120107
  18. ALEROFF [Concomitant]
     Indication: RHINITIS ALLERGIC
     Dosage: INITIATED BEFORE INFLIXIMAB
     Route: 048

REACTIONS (4)
  - COLITIS ULCERATIVE [None]
  - DRUG INEFFECTIVE [None]
  - PANCREATITIS ACUTE [None]
  - PNEUMONIA [None]
